FAERS Safety Report 4416953-1 (Version None)
Quarter: 2004Q3

REPORT INFORMATION
  Report Type: 
  Country: None (occurrence: None)
  Receive Date: 20040806
  Receipt Date: 20040728
  Transmission Date: 20050211
  Serious: Yes (Other)
  Sender: FDA-Public Use
  Company Number: US-BRISTOL-MYERS SQUIBB COMPANY-12657193

PATIENT
  Age: 49 Year
  Sex: Female

DRUGS (2)
  1. HYDROXYUREA [Suspect]
     Indication: POLYCYTHAEMIA VERA
     Dates: start: 19980101
  2. INTERFERON ALPHA [Suspect]
     Indication: POLYCYTHAEMIA VERA
     Route: 058
     Dates: start: 19980101

REACTIONS (2)
  - MYOCARDIAL INFARCTION [None]
  - RASH MACULO-PAPULAR [None]
